FAERS Safety Report 12367996 (Version 1)
Quarter: 2016Q2

REPORT INFORMATION
  Report Type: Report from Study
  Country: US (occurrence: US)
  Receive Date: 20160513
  Receipt Date: 20160513
  Transmission Date: 20160815
  Serious: Yes (Hospitalization)
  Sender: FDA-Public Use
  Company Number: US-ABBVIE-16K-163-1624344-00

PATIENT
  Age: 56 Year
  Sex: Female

DRUGS (1)
  1. HUMIRA [Suspect]
     Active Substance: ADALIMUMAB
     Indication: PSORIASIS
     Route: 058
     Dates: start: 20160408

REACTIONS (4)
  - Cardiac disorder [Recovered/Resolved]
  - Headache [Recovered/Resolved]
  - Memory impairment [Unknown]
  - Vomiting [Unknown]

NARRATIVE: CASE EVENT DATE: 2016
